FAERS Safety Report 19769746 (Version 1)
Quarter: 2021Q3

REPORT INFORMATION
  Report Type: Spontaneous
  Country: NL (occurrence: NL)
  Receive Date: 20210831
  Receipt Date: 20210831
  Transmission Date: 20211014
  Serious: Yes (Other)
  Sender: FDA-Public Use
  Company Number: NL-MYLANLABS-2021M1056626

PATIENT
  Age: 28 Year
  Sex: Male
  Weight: 84 kg

DRUGS (1)
  1. FINASTERIDE. [Suspect]
     Active Substance: FINASTERIDE
     Indication: ANDROGENETIC ALOPECIA
     Dosage: 1 MILLIGRAM, QD
     Route: 065
     Dates: start: 20200320, end: 20200410

REACTIONS (5)
  - Semen viscosity abnormal [Not Recovered/Not Resolved]
  - Flat affect [Not Recovered/Not Resolved]
  - Anhedonia [Not Recovered/Not Resolved]
  - Erectile dysfunction [Not Recovered/Not Resolved]
  - Loss of libido [Not Recovered/Not Resolved]

NARRATIVE: CASE EVENT DATE: 20200402
